FAERS Safety Report 5423108-0 (Version None)
Quarter: 2007Q3

REPORT INFORMATION
  Report Type: 
  Country: None (occurrence: None)
  Receive Date: 20070821
  Receipt Date: 20070810
  Transmission Date: 20080115
  Serious: Yes (Other)
  Sender: FDA-Public Use
  Company Number: 028-21880-07071339

PATIENT
  Age: 77 Year
  Sex: Male
  Weight: 65.7 kg

DRUGS (11)
  1. REVLIMID [Suspect]
     Indication: MULTIPLE MYELOMA
     Dosage: 10 MG, QD X21 DAYS, ORAL
     Route: 048
     Dates: start: 20070517, end: 20070709
  2. MELPHALAN (MELPHALAN) [Suspect]
     Indication: MULTIPLE MYELOMA
     Dosage: 8 MG, OD DAYS 1-4, ORAL; 5 MG/M2, QD DAYS 1-4, ORAL
     Route: 048
     Dates: start: 20070517, end: 20070521
  3. MELPHALAN (MELPHALAN) [Suspect]
     Indication: MULTIPLE MYELOMA
     Dosage: 8 MG, OD DAYS 1-4, ORAL; 5 MG/M2, QD DAYS 1-4, ORAL
     Route: 048
     Dates: start: 20070609, end: 20070622
  4. ASPIRIN [Concomitant]
  5. LEVOTHYROXINE SODIUM [Concomitant]
  6. TRIAZIDE (TRICHLORMETHIAZIDE) [Concomitant]
  7. ADALAT CC [Concomitant]
  8. CRESTOR [Concomitant]
  9. HYCODAN [Concomitant]
  10. SENOKOT [Concomitant]
  11. COLACE (DOCUSATE SODIUM) [Concomitant]

REACTIONS (3)
  - IIIRD NERVE PARALYSIS [None]
  - NO THERAPEUTIC RESPONSE [None]
  - VITH NERVE PARALYSIS [None]
